FAERS Safety Report 21813159 (Version 2)
Quarter: 2023Q1

REPORT INFORMATION
  Report Type: Spontaneous
  Country: FR (occurrence: FR)
  Receive Date: 20230103
  Receipt Date: 20230221
  Transmission Date: 20230418
  Serious: Yes (Hospitalization)
  Sender: FDA-Public Use
  Company Number: None

PATIENT
  Age: 39 Year
  Sex: Male
  Weight: 95 kg

DRUGS (6)
  1. LYRICA [Suspect]
     Active Substance: PREGABALIN
     Indication: Neuralgia
     Dosage: 300 MILLIGRAM
     Route: 048
     Dates: start: 202205, end: 20220609
  2. PIPERACILLIN SODIUM\TAZOBACTAM SODIUM [Suspect]
     Active Substance: PIPERACILLIN SODIUM\TAZOBACTAM SODIUM
     Indication: Skin bacterial infection
     Dosage: 12 GRAM
     Route: 042
     Dates: start: 20220509, end: 20220513
  3. PIPERACILLIN SODIUM\TAZOBACTAM SODIUM [Suspect]
     Active Substance: PIPERACILLIN SODIUM\TAZOBACTAM SODIUM
     Dosage: 12 GRAM
     Route: 042
     Dates: start: 20220521, end: 20220606
  4. AMITRIPTYLINE HYDROCHLORIDE [Suspect]
     Active Substance: AMITRIPTYLINE HYDROCHLORIDE
     Indication: Neuralgia
     Dosage: 20 MILLIGRAM, DRINKABLE SOLUTION
     Route: 048
     Dates: start: 202205, end: 20220609
  5. CLINDAMYCIN [Suspect]
     Active Substance: CLINDAMYCIN
     Indication: Skin bacterial infection
     Dosage: 18 GRAM
     Route: 042
     Dates: start: 20220509, end: 20220513
  6. CLINDAMYCIN [Suspect]
     Active Substance: CLINDAMYCIN
     Dosage: 18 GRAM
     Route: 042
     Dates: start: 20220521, end: 20220609

REACTIONS (1)
  - Drug reaction with eosinophilia and systemic symptoms [Recovering/Resolving]

NARRATIVE: CASE EVENT DATE: 20220609
